FAERS Safety Report 19355071 (Version 1)
Quarter: 2021Q2

REPORT INFORMATION
  Report Type: Spontaneous
  Country: US (occurrence: US)
  Receive Date: 20210601
  Receipt Date: 20210601
  Transmission Date: 20210717
  Serious: No
  Sender: FDA-Public Use
  Company Number: None

PATIENT
  Age: 66 Year
  Sex: Male
  Weight: 81.9 kg

DRUGS (10)
  1. BAYER LOW DOSE ASPIRIN [Concomitant]
  2. KIRKLAND PSYLLIUM FIBER [Concomitant]
  3. FLUTICASONE PROPIONATE. [Suspect]
     Active Substance: FLUTICASONE PROPIONATE
     Indication: SEASONAL ALLERGY
     Dosage: ?          QUANTITY:2 PUFF(S);?
     Route: 055
     Dates: start: 20210409, end: 20210515
  4. BUPROPION (EXTENDED RELEASE) [Concomitant]
     Active Substance: BUPROPION
  5. TRUNAYURE PROSTATE PLUS HEALTH COMPLEX [Concomitant]
  6. ROSUVASTATIN. [Concomitant]
     Active Substance: ROSUVASTATIN
  7. KIRKLAND D3 [Concomitant]
  8. KIRKLAND FISH OIL [Concomitant]
  9. DOXAZOSIN [Concomitant]
     Active Substance: DOXAZOSIN MESYLATE
  10. KIRKLAND MATURE MULTI VITAMINS AND MINERALS [Concomitant]

REACTIONS (2)
  - Taste disorder [None]
  - Stomatitis [None]

NARRATIVE: CASE EVENT DATE: 20210515
